FAERS Safety Report 11311584 (Version 2)
Quarter: 2016Q1

REPORT INFORMATION
  Report Type: Report from Study
  Country: AU (occurrence: AU)
  Receive Date: 20150727
  Receipt Date: 20160314
  Transmission Date: 20160525
  Serious: Yes (Hospitalization)
  Sender: FDA-Public Use
  Company Number: PHHY2015AU078626

PATIENT
  Sex: Female

DRUGS (1)
  1. SANDOSTATIN LAR DEPOT [Suspect]
     Active Substance: OCTREOTIDE ACETATE
     Indication: ACROMEGALY
     Dosage: 30 MG, UNK
     Route: 030

REACTIONS (8)
  - Malaise [Unknown]
  - Pneumonia [Unknown]
  - Dizziness [Unknown]
  - Memory impairment [Unknown]
  - Influenza [Unknown]
  - Feeling abnormal [Unknown]
  - Asthenia [Unknown]
  - Anxiety [Unknown]
